FAERS Safety Report 6318868-0 (Version None)
Quarter: 2009Q3

REPORT INFORMATION
  Report Type: 
  Country: None (occurrence: None)
  Receive Date: 20090821
  Receipt Date: 20090811
  Transmission Date: 20100115
  Serious: Yes (Other)
  Sender: FDA-Public Use
  Company Number: AU-ELI_LILLY_AND_COMPANY-AU200908002027

PATIENT
  Age: 63 Year
  Sex: Male

DRUGS (2)
  1. ZYPREXA [Suspect]
     Indication: BIPOLAR DISORDER
  2. LITHIUM [Concomitant]

REACTIONS (4)
  - DYSKINESIA [None]
  - FALL [None]
  - HALLUCINATION [None]
  - NEOPLASM MALIGNANT [None]
